FAERS Safety Report 20526455 (Version 1)
Quarter: 2022Q1

REPORT INFORMATION
  Report Type: Spontaneous
  Country: None (occurrence: US)
  Receive Date: 20220228
  Receipt Date: 20220228
  Transmission Date: 20220423
  Serious: Yes (Other)
  Sender: FDA-Public Use
  Company Number: US-Leiters-2126285

PATIENT
  Age: 78 Year
  Sex: Female

DRUGS (1)
  1. LIDOCAINE HYDROCHLORIDE\PHENYLEPHRINE HYDROCHLORIDE [Suspect]
     Active Substance: LIDOCAINE HYDROCHLORIDE\PHENYLEPHRINE HYDROCHLORIDE
     Route: 047
     Dates: start: 20220215, end: 20220215

REACTIONS (1)
  - Intraocular pressure increased [Recovered/Resolved]

NARRATIVE: CASE EVENT DATE: 20220215
